FAERS Safety Report 10596089 (Version 1)
Quarter: 2014Q4

REPORT INFORMATION
  Report Type: Spontaneous
  Country: US (occurrence: US)
  Receive Date: 20141120
  Receipt Date: 20141120
  Transmission Date: 20150529
  Serious: Yes (Other)
  Sender: FDA-Public Use
  Company Number: US-UCBSA-2014018430

PATIENT

DRUGS (2)
  1. KEPPRA [Suspect]
     Active Substance: LEVETIRACETAM
     Indication: PRODUCT USED FOR UNKNOWN INDICATION
     Dosage: UNKNOWN DOSE
  2. VIMPAT [Suspect]
     Active Substance: LACOSAMIDE
     Indication: PRODUCT USED FOR UNKNOWN INDICATION
     Dosage: UNKNOWN DOSE

REACTIONS (9)
  - Balance disorder [Unknown]
  - Insomnia [Unknown]
  - Impulsive behaviour [Unknown]
  - Suicidal ideation [Unknown]
  - Decreased appetite [Unknown]
  - Hallucination, auditory [Unknown]
  - Depression [Unknown]
  - Paranoia [Unknown]
  - Anger [Unknown]
